FAERS Safety Report 12995642 (Version 2)
Quarter: 2016Q4

REPORT INFORMATION
  Report Type: Spontaneous
  Country: US (occurrence: US)
  Receive Date: 20161202
  Receipt Date: 20161223
  Transmission Date: 20170207
  Serious: No
  Sender: FDA-Public Use
  Company Number: US-GLAXOSMITHKLINE-US2016178084

PATIENT
  Sex: Female

DRUGS (4)
  1. CEFTIN [Suspect]
     Active Substance: CEFUROXIME AXETIL
     Indication: EAR INFECTION
     Dosage: UNK UNK, Z
     Route: 048
     Dates: start: 20161128
  2. PENICILLIN [Concomitant]
     Active Substance: PENICILLIN
  3. FOLIC ACID. [Concomitant]
     Active Substance: FOLIC ACID
  4. HYDROXYUREA. [Concomitant]
     Active Substance: HYDROXYUREA

REACTIONS (3)
  - Vomiting [Recovered/Resolved]
  - Retching [Recovered/Resolved]
  - Product quality issue [Unknown]
